FAERS Safety Report 10922413 (Version 2)
Quarter: 2015Q2

REPORT INFORMATION
  Report Type: Report from Study
  Country: BR (occurrence: BR)
  Receive Date: 20150317
  Receipt Date: 20150407
  Transmission Date: 20150821
  Serious: Yes (Other)
  Sender: FDA-Public Use
  Company Number: PHHY2015BR031411

PATIENT
  Sex: Female
  Weight: 67 kg

DRUGS (5)
  1. SELOZOK [Concomitant]
     Active Substance: METOPROLOL SUCCINATE
     Indication: CARDIAC DISORDER
     Dosage: 1 DF, QD
     Route: 048
  2. GLUCOFORMIN [Concomitant]
     Active Substance: METFORMIN HYDROCHLORIDE
     Indication: DIABETES MELLITUS
     Dosage: 2 DF, QD
     Route: 048
  3. ENALAPRIL [Concomitant]
     Active Substance: ENALAPRIL
     Indication: DIABETES MELLITUS
     Dosage: 2 DF, QD
     Route: 048
  4. AAS [Concomitant]
     Active Substance: ASPIRIN
     Indication: PROPHYLAXIS
     Dosage: 1 DF, QD
     Route: 048
  5. SANDOSTATIN LAR DEPOT [Suspect]
     Active Substance: OCTREOTIDE ACETATE
     Indication: BLOOD GROWTH HORMONE ABNORMAL
     Dosage: 1 DF, QMO
     Route: 030
     Dates: start: 2003

REACTIONS (9)
  - Malaise [Recovering/Resolving]
  - Body height decreased [Not Recovered/Not Resolved]
  - Intestinal mass [Unknown]
  - Constipation [Recovering/Resolving]
  - Abdominal distension [Not Recovered/Not Resolved]
  - Poor quality sleep [Recovered/Resolved]
  - Stress [Recovering/Resolving]
  - Diabetes mellitus [Not Recovered/Not Resolved]
  - Depression [Recovering/Resolving]

NARRATIVE: CASE EVENT DATE: 2007
